FAERS Safety Report 24838822 (Version 1)
Quarter: 2025Q1

REPORT INFORMATION
  Report Type: Spontaneous
  Country: US (occurrence: US)
  Receive Date: 20250113
  Receipt Date: 20250113
  Transmission Date: 20250409
  Serious: No
  Sender: ROCHE
  Company Number: US-ROCHE-10000174659

PATIENT
  Age: 30 Year
  Sex: Female
  Weight: 61.23 kg

DRUGS (2)
  1. RITUXAN [Suspect]
     Active Substance: RITUXIMAB
     Indication: Vasculitis
     Route: 042
     Dates: start: 20240603
  2. ASPIRIN [Concomitant]
     Active Substance: ASPIRIN
     Indication: Vascular pseudoaneurysm
     Route: 048
     Dates: start: 202412

REACTIONS (7)
  - Off label use [Unknown]
  - Blister [Recovering/Resolving]
  - Skin ulcer [Recovering/Resolving]
  - Rash [Recovering/Resolving]
  - Headache [Not Recovered/Not Resolved]
  - Vascular pseudoaneurysm [Not Recovered/Not Resolved]
  - Oral mucosal blistering [Recovering/Resolving]

NARRATIVE: CASE EVENT DATE: 20240603
